FAERS Safety Report 7757875 (Version 6)
Quarter: 2012Q4

REPORT INFORMATION
  Report Type: 
  Country: US (occurrence: US)
  Receive Date: 20110112
  Receipt Date: 20120903
  Transmission Date: 20130627
  Serious: Yes (Hospitalization, Disabling, Other)
  Sender: FDA-Public Use
  Company Number: US-BAYER-2011-003056

PATIENT
  Age: 36 Year
  Sex: Female
  Weight: 61 kg

DRUGS (1)
  1. YAZ [Suspect]
     Indication: CONTRACEPTION
     Dosage: UNK
     Route: 048
     Dates: start: 2006, end: 20090111

REACTIONS (25)
  - Cerebral infarction [None]
  - Confusional state [None]
  - Visual impairment [None]
  - Hemiparesis [None]
  - Gait disturbance [None]
  - Aphasia [None]
  - Unresponsive to stimuli [None]
  - Paraesthesia [None]
  - Cognitive disorder [None]
  - Impaired self-care [None]
  - Myocardial infarction [None]
  - Hyperhidrosis [None]
  - Diarrhoea [None]
  - Vomiting [None]
  - Pleural effusion [None]
  - Pain [None]
  - Injury [None]
  - Thrombosis [None]
  - Aortic thrombosis [None]
  - Post stroke depression [None]
  - Anxiety [None]
  - Stress [None]
  - Sinus bradycardia [None]
  - Blood pressure decreased [None]
  - Headache [None]
